FAERS Safety Report 25418485 (Version 1)
Quarter: 2025Q2

REPORT INFORMATION
  Report Type: Spontaneous
  Country: SE (occurrence: SE)
  Receive Date: 20250610
  Receipt Date: 20250610
  Transmission Date: 20250717
  Serious: Yes (Hospitalization)
  Sender: BAYER HEALTHCARE PHARMACEUTICALS INC.
  Company Number: None

PATIENT
  Age: 23 Year
  Sex: Female

DRUGS (1)
  1. MIRENA [Suspect]
     Active Substance: LEVONORGESTREL
     Indication: Contraception
     Dosage: 20?G/DAY
     Route: 015

REACTIONS (3)
  - Ectopic pregnancy with contraceptive device [Recovering/Resolving]
  - Drug ineffective [Recovering/Resolving]
  - Salpingectomy [Recovering/Resolving]

NARRATIVE: CASE EVENT DATE: 20250501
